FAERS Safety Report 25484074 (Version 1)
Quarter: 2025Q2

REPORT INFORMATION
  Report Type: Spontaneous
  Country: ES (occurrence: ES)
  Receive Date: 20250626
  Receipt Date: 20250626
  Transmission Date: 20250716
  Serious: Yes (Hospitalization, Other)
  Sender: MYLAN
  Company Number: None

PATIENT
  Age: 13 Year
  Sex: Female

DRUGS (4)
  1. ACETAMINOPHEN [Suspect]
     Active Substance: ACETAMINOPHEN
     Indication: Product used for unknown indication
     Dosage: 20 G, QD, DOSE PER DOSE:20 G, NUMBER OF DOSES PER UNIT OF FREQUENCY:1, UNIT OF FREQUENCY: 1 DAY
     Dates: start: 20140207, end: 20140207
  2. ACETAMINOPHEN [Suspect]
     Active Substance: ACETAMINOPHEN
     Dosage: 20 G, QD, DOSE PER DOSE:20 G, NUMBER OF DOSES PER UNIT OF FREQUENCY:1, UNIT OF FREQUENCY: 1 DAY
     Route: 048
     Dates: start: 20140207, end: 20140207
  3. ACETAMINOPHEN [Suspect]
     Active Substance: ACETAMINOPHEN
     Dosage: 20 G, QD, DOSE PER DOSE:20 G, NUMBER OF DOSES PER UNIT OF FREQUENCY:1, UNIT OF FREQUENCY: 1 DAY
     Route: 048
     Dates: start: 20140207, end: 20140207
  4. ACETAMINOPHEN [Suspect]
     Active Substance: ACETAMINOPHEN
     Dosage: 20 G, QD, DOSE PER DOSE:20 G, NUMBER OF DOSES PER UNIT OF FREQUENCY:1, UNIT OF FREQUENCY: 1 DAY
     Dates: start: 20140207, end: 20140207

REACTIONS (4)
  - Acute kidney injury [Recovered/Resolved]
  - Suicide attempt [Unknown]
  - Acute hepatic failure [Recovered/Resolved]
  - Intentional overdose [Recovered/Resolved]

NARRATIVE: CASE EVENT DATE: 20140207
